FAERS Safety Report 10031867 (Version 2)
Quarter: 2014Q2

REPORT INFORMATION
  Report Type: Report from Study
  Country: US (occurrence: US)
  Receive Date: 20140324
  Receipt Date: 20140428
  Transmission Date: 20141212
  Serious: No
  Sender: FDA-Public Use
  Company Number: US-VERTEX PHARMACEUTICALS INC-2014-001419

PATIENT
  Age: 16 Year
  Sex: Female

DRUGS (17)
  1. VX-770 [Suspect]
     Indication: CYSTIC FIBROSIS
     Dosage: 150 MG, BID
     Dates: start: 20140317
  2. ALBUTEROL SULFATE [Concomitant]
     Dosage: INHALE 2 PUFFS BID AND EVERY 3-4 HRS PRN
     Dates: start: 20140325
  3. ALBUTEROL SULFATE [Concomitant]
     Dosage: 2.5MG/3ML, INHALE 1 VIAL EVERY 3-4 HRS PRNUNK
     Dates: start: 20140331
  4. AZITHROMYCIN [Concomitant]
     Dosage: 500 MG, MONDAY, WEDNESDAY AND FRIDAY
     Dates: start: 20140325
  5. CHOLECALCIFEROL [Concomitant]
     Dosage: 2000 UT, TID
     Route: 048
     Dates: start: 20130531
  6. CREON [Concomitant]
     Dosage: 5 CAPSULES BEFORE MEALS, 3 CAPSULES BEFORE SNACKS
     Dates: start: 20140325
  7. HYPER-SAL/ OTHER THERAPEUTIC PRODUCTS [Concomitant]
     Dosage: 7 %, 1 VIAL BID
     Dates: start: 20140325
  8. MEPHYTON [Concomitant]
     Dosage: 5 MG, QD
     Dates: start: 20140325
  9. MONTELUKAST [Concomitant]
     Dosage: 5 MG, QD
     Dates: start: 20131011
  10. MULTIVITAMIN [Concomitant]
     Dosage: 1 DF, QD
     Dates: start: 20131011
  11. PREVACID [Concomitant]
     Dosage: 15 MG, QD
     Route: 048
     Dates: start: 20140325
  12. PULMOZYME [Concomitant]
     Dosage: 2.5 MG, QD
     Dates: start: 20140325
  13. QNASL/ OTHER THERAPEUTIC PRODUCTS [Concomitant]
     Dosage: 1 SPRAY QD
     Dates: start: 20140325
  14. SCANDISHAKE PACKET/ OTHER THERAPEUTIC PRODUCTS [Concomitant]
     Dosage: 1 PACKET, QD
     Route: 048
     Dates: start: 20100202
  15. TOBI [Concomitant]
     Dosage: 4 DF, BID 28 DAYS CYLCLE ON AND OFF
     Route: 048
     Dates: start: 20140325
  16. ZINC [Concomitant]
     Dosage: 50 MG, QD
     Route: 048
     Dates: start: 20131114
  17. ZYRTEC [Concomitant]
     Dosage: 10 MG, QD
     Route: 048
     Dates: start: 20130520

REACTIONS (1)
  - Headache [Recovered/Resolved with Sequelae]
